FAERS Safety Report 6980040-9 (Version None)
Quarter: 2010Q3

REPORT INFORMATION
  Report Type: 
  Country: None (occurrence: None)
  Receive Date: 20100914
  Receipt Date: 20100902
  Transmission Date: 20110219
  Serious: Yes (Hospitalization, Other)
  Sender: FDA-Public Use
  Company Number: JP-PFIZER INC-2010106064

PATIENT
  Age: 75 Year
  Sex: Female
  Weight: 44 kg

DRUGS (9)
  1. LYRICA [Suspect]
     Indication: POST HERPETIC NEURALGIA
     Dosage: 150 MG/DAY
     Route: 048
     Dates: start: 20100813, end: 20100813
  2. ARASENA [Suspect]
     Indication: POST HERPETIC NEURALGIA
     Dosage: 300 MG/DAY
     Route: 041
     Dates: start: 20100812, end: 20100818
  3. NU LOTAN [Concomitant]
     Dosage: UNK
  4. DIGOXIN [Concomitant]
     Dosage: UNK
  5. OMERAP [Concomitant]
     Dosage: UNK
  6. THEO SLOW [Concomitant]
     Dosage: UNK
  7. MUCOSOLATE [Concomitant]
     Dosage: UNK
  8. SEDAGASTON [Concomitant]
     Dosage: UNK
  9. LASIX [Concomitant]
     Dosage: UNK

REACTIONS (6)
  - ASTHENIA [None]
  - BALANCE DISORDER [None]
  - DIZZINESS [None]
  - DYSARTHRIA [None]
  - FALL [None]
  - TREMOR [None]
